FAERS Safety Report 5312926-5 (Version None)
Quarter: 2007Q2

REPORT INFORMATION
  Report Type: 
  Country: None (occurrence: None)
  Receive Date: 20070424
  Receipt Date: 20070416
  Transmission Date: 20071010
  Serious: Yes (Disabling)
  Sender: FDA-Public Use
  Company Number: 2007-01095

PATIENT
  Age: 72 Year
  Sex: Male

DRUGS (1)
  1. VELCADE [Suspect]
     Indication: MULTIPLE MYELOMA
     Dosage: 2.60 MG, INTRAVENOUS
     Route: 042
     Dates: start: 20070129, end: 20070406

REACTIONS (5)
  - ABASIA [None]
  - ASTHENIA [None]
  - DISEASE PROGRESSION [None]
  - FALL [None]
  - MULTIPLE MYELOMA [None]
